FAERS Safety Report 6048286-4 (Version None)
Quarter: 2009Q1

REPORT INFORMATION
  Report Type: 
  Country: None (occurrence: None)
  Receive Date: 20090121
  Receipt Date: 20090121
  Transmission Date: 20090719
  Serious: Yes (Other)
  Sender: FDA-Public Use
  Company Number: None

PATIENT
  Sex: Male
  Weight: 115.2136 kg

DRUGS (21)
  1. PREZISTA [Suspect]
     Indication: HIV INFECTION
     Dosage: 600 MG TWICE DAILY PO
     Route: 048
     Dates: start: 20080920, end: 20081020
  2. ISENTRESS [Suspect]
     Indication: HIV INFECTION
     Dosage: 400MG TWICE DAILY PO
     Route: 048
     Dates: start: 20080920, end: 20081020
  3. RITONAVIR [Concomitant]
  4. BARACLUDE [Concomitant]
  5. LAMIVUDINE [Concomitant]
  6. FUROSEMIDE [Concomitant]
  7. ASPIRIN [Concomitant]
  8. RANITIDINE [Concomitant]
  9. ALENDRONATE SODIUM [Concomitant]
  10. OSYTCAL [Concomitant]
  11. VITAMIN D [Concomitant]
  12. OXYBUTYNIN CHLORIDE [Concomitant]
  13. ALLOPURINOL [Concomitant]
  14. MULTI-VITAMIN [Concomitant]
  15. FELODIPINE [Concomitant]
  16. LACTULOSE [Concomitant]
  17. TRAMADOL HCL [Concomitant]
  18. ALFUZOSIN HCL [Concomitant]
  19. FLUOCINOLINE [Concomitant]
  20. HYDROCORTISONE [Concomitant]
  21. KETOCONAZOLE SHAMPOO [Concomitant]

REACTIONS (2)
  - ALANINE AMINOTRANSFERASE INCREASED [None]
  - ASPARTATE AMINOTRANSFERASE INCREASED [None]
